FAERS Safety Report 24375878 (Version 2)
Quarter: 2024Q4

REPORT INFORMATION
  Report Type: Spontaneous
  Country: US (occurrence: US)
  Receive Date: 20240928
  Receipt Date: 20241205
  Transmission Date: 20250115
  Serious: No
  Sender: MERCK
  Company Number: US-009507513-2409USA007711

PATIENT
  Sex: Male

DRUGS (2)
  1. WINREVAIR [Suspect]
     Active Substance: SOTATERCEPT-CSRK
     Indication: Product used for unknown indication
     Dosage: 0.7 MILLILITER
     Dates: start: 2024
  2. TYVASO [Suspect]
     Active Substance: TREPROSTINIL
     Indication: Pulmonary arterial hypertension
     Dosage: 36 MICROGRAM (6 BREATHS), QID
     Dates: start: 202405

REACTIONS (1)
  - Pyrexia [Unknown]

NARRATIVE: CASE EVENT DATE: 20240101
